FAERS Safety Report 9079138 (Version 1)
Quarter: 2013Q1

REPORT INFORMATION
  Report Type: Report from Study
  Country: US (occurrence: US)
  Receive Date: 20130130
  Receipt Date: 20130130
  Transmission Date: 20140127
  Serious: No
  Sender: FDA-Public Use
  Company Number: US-ABBOTT-12P-163-0962301-00

PATIENT
  Age: 70 Year
  Sex: Male

DRUGS (4)
  1. HUMIRA 40 MG/0.8 ML PEN [Suspect]
     Indication: CROHN^S DISEASE
     Dates: start: 20120530
  2. CRESTOR [Concomitant]
     Indication: HYPERLIPIDAEMIA
  3. OMEPRAZOLE [Concomitant]
     Indication: GASTRIC DISORDER
  4. COZAAR [Concomitant]
     Indication: BLOOD PRESSURE
     Dosage: CHANGING TO BENICAR TOMORROW

REACTIONS (1)
  - Injection site hypersensitivity [Recovering/Resolving]
